FAERS Safety Report 4746300-7 (Version None)
Quarter: 2005Q3

REPORT INFORMATION
  Report Type: 
  Country: None (occurrence: None)
  Receive Date: 20050816
  Receipt Date: 20050727
  Transmission Date: 20060218
  Serious: Yes (Death)
  Sender: FDA-Public Use
  Company Number: 2013342-2005-002

PATIENT
  Sex: Female

DRUGS (1)
  1. ANTICOAGULANT CITRATE DEXTROSE SOLUTION, USP (ACD), SOLUTION A [Suspect]

REACTIONS (3)
  - GENERAL PHYSICAL HEALTH DETERIORATION [None]
  - SERRATIA INFECTION [None]
  - SHOCK [None]
